FAERS Safety Report 8484687-2 (Version None)
Quarter: 2012Q3

REPORT INFORMATION
  Report Type: 
  Country: None (occurrence: None)
  Receive Date: 20120703
  Receipt Date: 20120430
  Transmission Date: 20120928
  Serious: No
  Sender: FDA-Public Use
  Company Number: US-TEVA-335873USA

PATIENT
  Sex: Female
  Weight: 72.64 kg

DRUGS (6)
  1. NUVIGIL [Suspect]
     Indication: POST-TRAUMATIC STRESS DISORDER
  2. DULOXETINE HYDROCHLORIDE [Concomitant]
     Indication: POST-TRAUMATIC STRESS DISORDER
  3. ARIPIPRAZOLE [Concomitant]
     Indication: POST-TRAUMATIC STRESS DISORDER
  4. ARIPIPRAZOLE [Concomitant]
     Indication: DEPRESSION
  5. NUVIGIL [Suspect]
     Indication: DEPRESSION
     Dosage: 250 MILLIGRAM;
     Route: 048
     Dates: start: 20100101
  6. DULOXETINE HYDROCHLORIDE [Concomitant]
     Indication: DEPRESSION

REACTIONS (5)
  - OFF LABEL USE [None]
  - DRUG TOLERANCE [None]
  - FALL [None]
  - LIGAMENT SPRAIN [None]
  - UPPER LIMB FRACTURE [None]
